FAERS Safety Report 12249955 (Version 2)
Quarter: 2016Q2

REPORT INFORMATION
  Report Type: Spontaneous
  Country: US (occurrence: US)
  Receive Date: 20160408
  Receipt Date: 20160531
  Transmission Date: 20160815
  Serious: Yes (Hospitalization, Other)
  Sender: FDA-Public Use
  Company Number: US-BAYER-2016-063581

PATIENT
  Age: 63 Year
  Sex: Male

DRUGS (8)
  1. BAYER ADVANCED ASPIRIN REGULAR STRENGTH [Suspect]
     Active Substance: ASPIRIN
     Indication: MYOCARDIAL ISCHAEMIA
     Dosage: UNK
     Route: 048
     Dates: start: 200712
  2. BUMETANIDE. [Concomitant]
     Active Substance: BUMETANIDE
     Dosage: UNK
     Dates: start: 20080102
  3. CANDESARTAN [Concomitant]
     Active Substance: CANDESARTAN
     Dosage: UNK
     Dates: start: 20130727
  4. WARFARIN [Interacting]
     Active Substance: WARFARIN
     Dosage: UNK
     Dates: start: 200712
  5. SILDENAFIL CITRATE. [Concomitant]
     Active Substance: SILDENAFIL CITRATE
     Indication: CARDIAC FAILURE
     Dosage: UNK
     Dates: start: 20140826
  6. ATORVASTATIN [Concomitant]
     Active Substance: ATORVASTATIN
     Dosage: UNK
     Dates: start: 20130506
  7. CARVEDILOL. [Concomitant]
     Active Substance: CARVEDILOL
     Dosage: UNK
     Dates: start: 20130727
  8. ALLOPURINOL. [Concomitant]
     Active Substance: ALLOPURINOL
     Dosage: UNK
     Dates: start: 20080802

REACTIONS (7)
  - Melaena [Recovered/Resolved]
  - Off label use [None]
  - Small intestinal haemorrhage [Recovered/Resolved]
  - Small intestinal haemorrhage [Recovered/Resolved]
  - Epistaxis [None]
  - Labelled drug-drug interaction medication error [None]
  - Melaena [Recovered/Resolved]

NARRATIVE: CASE EVENT DATE: 20141218
